FAERS Safety Report 24997319 (Version 3)
Quarter: 2025Q3

REPORT INFORMATION
  Report Type: Spontaneous
  Country: JP (occurrence: JP)
  Receive Date: 20250222
  Receipt Date: 20250927
  Transmission Date: 20251021
  Serious: Yes (Death, Hospitalization, Other)
  Sender: UNITED THERAPEUTICS
  Company Number: JP-UNITED THERAPEUTICS-UNT-2023-031442

PATIENT
  Age: 69 Year
  Sex: Male

DRUGS (2)
  1. TREPROSTINIL [Suspect]
     Active Substance: TREPROSTINIL
     Indication: Pulmonary arterial hypertension
     Dosage: 18 ?G, QID
     Dates: start: 20230802, end: 2023
  2. TREPROSTINIL [Suspect]
     Active Substance: TREPROSTINIL
     Indication: Collagen-vascular disease
     Dosage: 36 ?G, QID
     Dates: end: 20250913

REACTIONS (3)
  - Death [Fatal]
  - Pulmonary hypertension [Not Recovered/Not Resolved]
  - Pruritus [Unknown]

NARRATIVE: CASE EVENT DATE: 20231001
